FAERS Safety Report 4771098-6 (Version None)
Quarter: 2005Q3

REPORT INFORMATION
  Report Type: 
  Country: None (occurrence: None)
  Receive Date: 20050914
  Receipt Date: 20050830
  Transmission Date: 20060218
  Serious: No
  Sender: FDA-Public Use
  Company Number: TPA2005A00999

PATIENT
  Sex: 0

DRUGS (1)
  1. ACTOS [Suspect]
     Dosage: 60 MG, 1 IN 1 D, PER ORAL
     Route: 048

REACTIONS (1)
  - UNEVALUABLE EVENT [None]
